FAERS Safety Report 6393020-1 (Version None)
Quarter: 2009Q4

REPORT INFORMATION
  Report Type: 
  Country: None (occurrence: None)
  Receive Date: 20091008
  Receipt Date: 20070926
  Transmission Date: 20100525
  Serious: Yes (Other)
  Sender: FDA-Public Use
  Company Number: US-ASTRAZENECA-2007UW16864

PATIENT
  Age: 55 Year
  Sex: Female
  Weight: 99.3 kg

DRUGS (12)
  1. SEROQUEL [Suspect]
     Indication: DEPRESSION
     Route: 048
     Dates: start: 19930101
  2. SEROQUEL [Suspect]
     Dosage: 100 MG - 200 MG
     Route: 048
     Dates: start: 20010221
  3. RISPERDAL [Suspect]
  4. XANAX [Concomitant]
     Dates: start: 20050804
  5. FLUOXETINE HCL [Concomitant]
     Dosage: 30 MG - 80 MG
     Dates: start: 20050804
  6. TRAZODONE HCL [Concomitant]
     Dosage: 100 MG - 200 MG
     Dates: start: 20001127
  7. ENALAPRIL MALEATE [Concomitant]
     Dates: start: 20050804
  8. LIPITOR [Concomitant]
     Dates: start: 20050804
  9. SIMVASTATIN [Concomitant]
     Dates: start: 20070731
  10. COZAAR [Concomitant]
     Dates: start: 20070511
  11. THIORIDAZINE HCL [Concomitant]
     Dates: start: 20010320
  12. GABAPENTIN [Concomitant]
     Dates: start: 20070416

REACTIONS (4)
  - DIABETES MELLITUS [None]
  - DIABETES MELLITUS INADEQUATE CONTROL [None]
  - DIABETIC NEPHROPATHY [None]
  - TYPE 2 DIABETES MELLITUS [None]
